FAERS Safety Report 4580081-5 (Version None)
Quarter: 2005Q1

REPORT INFORMATION
  Report Type: 
  Country: None (occurrence: None)
  Receive Date: 20050214
  Receipt Date: 20050203
  Transmission Date: 20050727
  Serious: Yes (Other)
  Sender: FDA-Public Use
  Company Number: US-JNJFOC-20050201567

PATIENT
  Age: 42 Year
  Sex: Male

DRUGS (1)
  1. ULTRACET [Suspect]
     Indication: TENDONITIS
     Route: 049

REACTIONS (1)
  - TENDON RUPTURE [None]
